FAERS Safety Report 10033916 (Version 2)
Quarter: 2014Q2

REPORT INFORMATION
  Report Type: Report from Study
  Country: US (occurrence: US)
  Receive Date: 20140325
  Receipt Date: 20140411
  Transmission Date: 20141212
  Serious: Yes (Hospitalization, Other)
  Sender: FDA-Public Use
  Company Number: US-BRISTOL-MYERS SQUIBB COMPANY-20502373

PATIENT
  Age: 70 Year
  Sex: Female

DRUGS (5)
  1. ABATACEPT SUBQ INJECTION 125MG/ML [Suspect]
     Indication: RHEUMATOID ARTHRITIS
     Route: 058
     Dates: end: 20140313
  2. METHOTREXATE [Concomitant]
  3. AMARYL [Concomitant]
  4. LOSARTAN [Concomitant]
  5. SYNTHROID [Concomitant]

REACTIONS (3)
  - Asthma [Unknown]
  - Joint injury [Unknown]
  - Weight decreased [Unknown]
